FAERS Safety Report 5767960-8 (Version None)
Quarter: 2008Q2

REPORT INFORMATION
  Report Type: 
  Country: None (occurrence: None)
  Receive Date: 20080612
  Receipt Date: 20080605
  Transmission Date: 20081010
  Serious: Yes (Other)
  Sender: FDA-Public Use
  Company Number: US-ABBOTT-08P-163-0455952-00

PATIENT
  Weight: 63.1 kg

DRUGS (13)
  1. DEPAKOTE [Suspect]
     Indication: HEADACHE
     Dosage: 1/3 OF A TABLET 3 TIMES A DAY
     Route: 048
     Dates: start: 20070101, end: 20070101
  2. GABAPENTIN [Suspect]
     Indication: RHEUMATOID ARTHRITIS
     Dates: start: 20070101
  3. PREGABALIN [Suspect]
     Indication: RHEUMATOID ARTHRITIS
     Dates: start: 20060301, end: 20070101
  4. METOPROLOL SUCCINATE [Concomitant]
     Indication: DRUG USE FOR UNKNOWN INDICATION
  5. FOLIC ACID [Concomitant]
     Indication: DRUG USE FOR UNKNOWN INDICATION
  6. VALSARTAN [Concomitant]
     Indication: DRUG USE FOR UNKNOWN INDICATION
  7. IBUROFEN [Concomitant]
     Indication: DRUG USE FOR UNKNOWN INDICATION
  8. PREDNISONE TAB [Concomitant]
     Indication: DRUG USE FOR UNKNOWN INDICATION
     Route: 047
  9. PREDNISONE TAB [Concomitant]
  10. METAXALONE [Concomitant]
     Indication: DRUG USE FOR UNKNOWN INDICATION
  11. RABEPRAZOLE SODIUM [Concomitant]
     Indication: DRUG USE FOR UNKNOWN INDICATION
  12. ANALGESICS [Concomitant]
     Indication: DRUG USE FOR UNKNOWN INDICATION
  13. NISOLDIPINE [Concomitant]
     Indication: HYPERTENSION

REACTIONS (12)
  - CARPAL TUNNEL SYNDROME [None]
  - CONTUSION [None]
  - GAIT DISTURBANCE [None]
  - HYPERTENSION [None]
  - INSOMNIA [None]
  - JOINT STIFFNESS [None]
  - MOBILITY DECREASED [None]
  - MUSCLE DISORDER [None]
  - MUSCLE SPASMS [None]
  - PAIN [None]
  - SWELLING [None]
  - VISUAL ACUITY REDUCED [None]
